FAERS Safety Report 10907462 (Version 1)
Quarter: 2015Q1

REPORT INFORMATION
  Report Type: Spontaneous
  Country: US (occurrence: None)
  Receive Date: 20150309
  Receipt Date: 20150309
  Transmission Date: 20150721
  Serious: Yes (Hospitalization)
  Sender: FDA-Public Use
  Company Number: None

PATIENT
  Age: 66 Year
  Sex: Male
  Weight: 98.6 kg

DRUGS (2)
  1. CARBOPLATIN. [Suspect]
     Active Substance: CARBOPLATIN
     Dosage: THIS IS DAY OF CYCLE 2
     Dates: end: 20150223
  2. TAXOL [Suspect]
     Active Substance: PACLITAXEL
     Dosage: DAY 1 OF CYCLE 2
     Dates: end: 20150223

REACTIONS (4)
  - Device leakage [None]
  - Discomfort [None]
  - Skin irritation [None]
  - Feeding tube complication [None]

NARRATIVE: CASE EVENT DATE: 20150226
